APPROVED DRUG PRODUCT: OXALIPLATIN
Active Ingredient: OXALIPLATIN
Strength: 50MG/10ML (5MG/ML)
Dosage Form/Route: INJECTABLE;INTRAVENOUS
Application: A091358 | Product #001 | TE Code: AP
Applicant: MYLAN LABORATORIES LTD
Approved: Aug 7, 2012 | RLD: No | RS: No | Type: RX